FAERS Safety Report 5631460-6 (Version None)
Quarter: 2008Q1

REPORT INFORMATION
  Report Type: 
  Country: None (occurrence: None)
  Receive Date: 20080215
  Receipt Date: 20080206
  Transmission Date: 20080703
  Serious: Yes (Hospitalization)
  Sender: FDA-Public Use
  Company Number: 230772K07USA

PATIENT
  Age: 45 Year
  Sex: Female

DRUGS (9)
  1. REBIF [Suspect]
     Indication: MULTIPLE SCLEROSIS
     Dosage: 8.8 MCG, 3 IN 1 WEEKS, SUBCUTANEOUS : 44 MCG, 3 IN 1 WEEKS, SUBCUTANEOUS
     Route: 058
     Dates: start: 20070118, end: 20070101
  2. REBIF [Suspect]
     Indication: MULTIPLE SCLEROSIS
     Dosage: 8.8 MCG, 3 IN 1 WEEKS, SUBCUTANEOUS : 44 MCG, 3 IN 1 WEEKS, SUBCUTANEOUS
     Route: 058
     Dates: start: 20070101
  3. TYLENOL (COTYLENOL) [Concomitant]
  4. MOTRIN [Concomitant]
  5. LOPRESSOR [Concomitant]
  6. KLONOPIN [Concomitant]
  7. FIBER (ALL OTHER NON-THERAPEUTIC PRODUCTS) [Concomitant]
  8. NASONEX [Concomitant]
  9. BENADRYL [Concomitant]

REACTIONS (4)
  - ANAEMIA [None]
  - DIVERTICULITIS [None]
  - INFECTION [None]
  - MOVEMENT DISORDER [None]
